FAERS Safety Report 9315367 (Version 1)
Quarter: 2013Q2

REPORT INFORMATION
  Report Type: Spontaneous
  Country: JP (occurrence: JP)
  Receive Date: 20130529
  Receipt Date: 20130529
  Transmission Date: 20140414
  Serious: Yes (Hospitalization)
  Sender: FDA-Public Use
  Company Number: JP-VERTEX PHARMACEUTICALS INC-2013-006500

PATIENT
  Age: 64 Year
  Sex: Female

DRUGS (1)
  1. TELAVIC [Suspect]
     Route: 048

REACTIONS (1)
  - Erythema multiforme [Recovered/Resolved]
